FAERS Safety Report 17731710 (Version 2)
Quarter: 2020Q2

REPORT INFORMATION
  Report Type: Spontaneous
  Country: ZA (occurrence: ZA)
  Receive Date: 20200501
  Receipt Date: 20200506
  Transmission Date: 20200714
  Serious: Yes (Other)
  Sender: FDA-Public Use
  Company Number: ZA-AMGEN-ZAFSP2018069214

PATIENT
  Age: 76 Year
  Sex: Male
  Weight: 80 kg

DRUGS (1)
  1. ENBREL [Suspect]
     Active Substance: ETANERCEPT
     Indication: RHEUMATOID ARTHRITIS
     Dosage: 50 MILLIGRAM, QWK
     Route: 058

REACTIONS (15)
  - Kyphosis [Unknown]
  - Haemoglobin decreased [Unknown]
  - Osteoarthritis [Unknown]
  - Blood urea increased [Unknown]
  - Red blood cell count decreased [Unknown]
  - Bronchitis chronic [Unknown]
  - Carbon dioxide decreased [Unknown]
  - Glomerular filtration rate decreased [Unknown]
  - Blood sodium decreased [Unknown]
  - Low density lipoprotein increased [Unknown]
  - Immunosuppression [Unknown]
  - C-reactive protein increased [Unknown]
  - Glomerular filtration rate decreased [Unknown]
  - Haematocrit decreased [Unknown]
  - Red blood cell sedimentation rate increased [Unknown]

NARRATIVE: CASE EVENT DATE: 20171024
